FAERS Safety Report 23693425 (Version 1)
Quarter: 2024Q2

REPORT INFORMATION
  Report Type: Spontaneous
  Country: FR (occurrence: FR)
  Receive Date: 20240401
  Receipt Date: 20240401
  Transmission Date: 20240716
  Serious: Yes (Life-Threatening, Hospitalization, Other)
  Sender: FDA-Public Use
  Company Number: FR-009507513-2403FRA009161

PATIENT
  Age: 62 Year
  Sex: Female
  Weight: 30 kg

DRUGS (11)
  1. PEMBROLIZUMAB [Suspect]
     Active Substance: PEMBROLIZUMAB
     Indication: Squamous cell carcinoma of head and neck
     Dosage: 200 MILLIGRAM
     Route: 042
     Dates: start: 20230901, end: 20230901
  2. PEMBROLIZUMAB [Suspect]
     Active Substance: PEMBROLIZUMAB
     Dosage: 200 MILLIGRAM
     Route: 042
     Dates: start: 20231019, end: 20231019
  3. METHADONE HYDROCHLORIDE [Concomitant]
     Active Substance: METHADONE HYDROCHLORIDE
     Indication: Oropharyngeal pain
     Dosage: 5 MILLIGRAM MORNING AND EVENING
  4. HYDROCORTISONE ACETATE [Concomitant]
     Active Substance: HYDROCORTISONE ACETATE
     Indication: Withdrawal syndrome
     Dosage: 10 MG 1 TABLET MORNING AND NOON, 2/DAYS
     Route: 048
  5. LANSOPRAZOLE [Concomitant]
     Active Substance: LANSOPRAZOLE
     Indication: Gastrooesophageal reflux disease
     Dosage: 30 MG 1 TABLET/DAY, EVERY 1 DAYS
     Route: 048
     Dates: end: 20231012
  6. LANSOPRAZOLE [Concomitant]
     Active Substance: LANSOPRAZOLE
     Dosage: 30 MG 1 TABLET MORNING AND 1 EVENING IN PROGRESS, 2/DAYS
     Route: 048
     Dates: start: 20231012
  7. FUNGIZONE [Concomitant]
     Active Substance: AMPHOTERICIN B
     Indication: Oral candidiasis
     Dosage: 1 TSP 3 TIMES/DAY IN PROGRESS, 3/DAYS
  8. FRESUBIN MEGAREAL [Concomitant]
     Indication: Malnutrition
     Dosage: 500 ML 1 SACHET /DAY IN PROGRESS.EVERY 1 DAYS
  9. DOLIPRANE [Concomitant]
     Active Substance: ACETAMINOPHEN
     Indication: Pain
     Dosage: 500 MG 1 TABLET 4 TIMES/DAY AS NECESSARY, 4/DAYS
  10. KARDEGIC [Concomitant]
     Active Substance: ASPIRIN DL-LYSINE
     Indication: Peripheral arterial occlusive disease
     Dosage: 75 MG 1 TABLET AT NOON IN PROGRESS, EVERY 1 DAYS
  11. LEVOTHYROXINE SODIUM [Concomitant]
     Active Substance: LEVOTHYROXINE SODIUM
     Indication: Hypothyroidism
     Dosage: 0.15 MG/ML 7 DROPS IN THE MORNING IN PROGRESS.

REACTIONS (1)
  - Cholecystitis [Recovered/Resolved]

NARRATIVE: CASE EVENT DATE: 20231012
